FAERS Safety Report 10220547 (Version 1)
Quarter: 2014Q2

REPORT INFORMATION
  Report Type: Spontaneous
  Country: CN (occurrence: None)
  Receive Date: 20140604
  Receipt Date: 20140604
  Transmission Date: 20141212
  Serious: Yes (Other)
  Sender: FDA-Public Use
  Company Number: IMP_07642_2014

PATIENT
  Age: 9 Year
  Sex: Female

DRUGS (3)
  1. VALPROIC ACID (VALPROIC ACID) [Suspect]
     Indication: EPILEPSY
  2. TOPIRAMATE [Concomitant]
  3. CLONAZEPAM [Concomitant]

REACTIONS (6)
  - Hepatic function abnormal [None]
  - Alpers^ disease [None]
  - Alanine aminotransferase increased [None]
  - Aspartate aminotransferase increased [None]
  - Blood bilirubin increased [None]
  - Liver injury [None]
